FAERS Safety Report 12080545 (Version 1)
Quarter: 2016Q1

REPORT INFORMATION
  Report Type: Spontaneous
  Country: US (occurrence: None)
  Receive Date: 20160212
  Receipt Date: 20160212
  Transmission Date: 20160526
  Serious: Yes (Hospitalization)
  Sender: FDA-Public Use
  Company Number: None

PATIENT
  Age: 7 Year
  Sex: Female
  Weight: 22.68 kg

DRUGS (2)
  1. TAMIFLU [Suspect]
     Active Substance: OSELTAMIVIR PHOSPHATE
     Indication: INFLUENZA
     Route: 048
     Dates: start: 20160210, end: 20160211
  2. IBPROFEN [Concomitant]

REACTIONS (5)
  - Tremor [None]
  - Deafness [None]
  - Blindness transient [None]
  - Mydriasis [None]
  - Screaming [None]

NARRATIVE: CASE EVENT DATE: 20160211
